FAERS Safety Report 14285189 (Version 1)
Quarter: 2017Q4

REPORT INFORMATION
  Report Type: Spontaneous
  Country: US (occurrence: US)
  Receive Date: 20171214
  Receipt Date: 20171214
  Transmission Date: 20180321
  Serious: Yes (Other)
  Sender: FDA-Public Use
  Company Number: US-ASTELLAS-2017US019155

PATIENT
  Sex: Female

DRUGS (1)
  1. TARCEVA [Suspect]
     Active Substance: ERLOTINIB HYDROCHLORIDE
     Indication: LUNG NEOPLASM MALIGNANT
     Route: 048
     Dates: start: 20170213, end: 20170501

REACTIONS (6)
  - Diarrhoea [Unknown]
  - Rash [Unknown]
  - Skin burning sensation [Unknown]
  - Pruritus [Unknown]
  - Acne [Unknown]
  - Dry skin [Unknown]
